FAERS Safety Report 17354466 (Version 1)
Quarter: 2020Q1

REPORT INFORMATION
  Report Type: Other
  Country: US (occurrence: US)
  Receive Date: 20200131
  Receipt Date: 20200131
  Transmission Date: 20200409
  Serious: Yes (Death)
  Sender: FDA-Public Use
  Company Number: US-HEALTHCARE PHARMACEUTICALS LTD.-2079655

PATIENT

DRUGS (6)
  1. VINCRISTINE SULFATE. [Suspect]
     Active Substance: VINCRISTINE SULFATE
  2. RITUXIMAB. [Suspect]
     Active Substance: RITUXIMAB
  3. ETOPOSIDE. [Suspect]
     Active Substance: ETOPOSIDE
  4. CYCLOPHOSPHAMIDE. [Suspect]
     Active Substance: CYCLOPHOSPHAMIDE
  5. PREDNISONE. [Suspect]
     Active Substance: PREDNISONE
  6. DOXORUBICIN HYDROCHLORIDE. [Suspect]
     Active Substance: DOXORUBICIN HYDROCHLORIDE
     Indication: DIFFUSE LARGE B-CELL LYMPHOMA

REACTIONS (1)
  - Death [Fatal]
